FAERS Safety Report 22522129 (Version 2)
Quarter: 2023Q2

REPORT INFORMATION
  Report Type: Spontaneous
  Country: US (occurrence: US)
  Receive Date: 20230605
  Receipt Date: 20230620
  Transmission Date: 20230721
  Serious: Yes (Hospitalization, Other)
  Sender: FDA-Public Use
  Company Number: US-BEH-2023159412

PATIENT
  Age: 63 Year
  Sex: Male

DRUGS (2)
  1. HUMATE-P [Suspect]
     Active Substance: HUMAN COAGULATION FACTOR VIII/VON WILLEBRAND FACTOR COMPLEX
     Indication: Von Willebrand^s disease
     Dosage: 4000 INTERNATIONAL UNIT, PRN
     Route: 042
     Dates: start: 201810
  2. HUMATE-P [Suspect]
     Active Substance: HUMAN COAGULATION FACTOR VIII/VON WILLEBRAND FACTOR COMPLEX
     Dosage: 4000 INTERNATIONAL UNIT, PRN
     Route: 042
     Dates: start: 202305

REACTIONS (7)
  - Road traffic accident [Unknown]
  - Head injury [Unknown]
  - Limb injury [Unknown]
  - Chest injury [Unknown]
  - Joint injury [Unknown]
  - Intestinal haemorrhage [Unknown]
  - Haemorrhage [Unknown]

NARRATIVE: CASE EVENT DATE: 20230223
